FAERS Safety Report 8268541-7 (Version None)
Quarter: 2012Q1

REPORT INFORMATION
  Report Type: 
  Country: None (occurrence: None)
  Receive Date: 20120327
  Receipt Date: 20091019
  Transmission Date: 20120608
  Serious: Yes (Hospitalization)
  Sender: FDA-Public Use
  Company Number: PHEH2009US06861

PATIENT
  Age: 66 Year
  Sex: Female

DRUGS (2)
  1. GLEEVEC [Suspect]
     Indication: MYELODYSPLASTIC SYNDROME
     Dosage: 400 MG,QD
     Dates: start: 20090618
  2. COUMADIN [Suspect]

REACTIONS (6)
  - DIARRHOEA [None]
  - GASTRITIS [None]
  - GASTROINTESTINAL HAEMORRHAGE [None]
  - NAUSEA [None]
  - VOMITING [None]
  - GASTROINTESTINAL INFECTION [None]
